FAERS Safety Report 11256557 (Version 1)
Quarter: 2015Q3

REPORT INFORMATION
  Report Type: Spontaneous
  Country: US (occurrence: US)
  Receive Date: 20150709
  Receipt Date: 20150709
  Transmission Date: 20151125
  Serious: Yes (Other)
  Sender: FDA-Public Use
  Company Number: US-MUNDIPHARMA DS AND PHARMACOVIGILANCE-USA-2014-0117557

PATIENT
  Sex: Female

DRUGS (3)
  1. FLEXERIL [Concomitant]
     Active Substance: CYCLOBENZAPRINE HYDROCHLORIDE
  2. BUTRANS [Suspect]
     Active Substance: BUPRENORPHINE
     Indication: PRODUCT USED FOR UNKNOWN INDICATION
     Dosage: UNK MCG/HR, WEEKLY
     Route: 062
  3. HYDROCODONE BITARTRATE (SIMILAR TO IND 59,175) [Suspect]
     Active Substance: HYDROCODONE BITARTRATE
     Indication: BREAKTHROUGH PAIN
     Route: 048

REACTIONS (1)
  - Overdose [Unknown]
